FAERS Safety Report 9191503 (Version 2)
Quarter: 2013Q2

REPORT INFORMATION
  Report Type: Spontaneous
  Country: US (occurrence: US)
  Receive Date: 20130326
  Receipt Date: 20130405
  Transmission Date: 20140414
  Serious: Yes (Death)
  Sender: FDA-Public Use
  Company Number: US-GILEAD-2013-0072294

PATIENT
  Sex: Female

DRUGS (2)
  1. LETAIRIS [Suspect]
     Indication: PULMONARY ARTERIAL HYPERTENSION
     Dosage: 5 MG, QD
     Dates: start: 20130110, end: 20130123
  2. LETAIRIS [Suspect]
     Indication: LUNG DISORDER

REACTIONS (4)
  - Multi-organ failure [Fatal]
  - Pulmonary oedema [Fatal]
  - Respiratory acidosis [Fatal]
  - Metabolic acidosis [Fatal]
